FAERS Safety Report 25157972 (Version 1)
Quarter: 2025Q2

REPORT INFORMATION
  Report Type: Spontaneous
  Country: BR (occurrence: BR)
  Receive Date: 20250404
  Receipt Date: 20250404
  Transmission Date: 20250716
  Serious: Yes (Life-Threatening, Other)
  Sender: NOVO NORDISK
  Company Number: BR-NOVOPROD-1398794

PATIENT
  Sex: Male

DRUGS (1)
  1. WEGOVY [Suspect]
     Active Substance: SEMAGLUTIDE
     Indication: Obesity

REACTIONS (3)
  - Hepatic cirrhosis [Unknown]
  - Metabolic dysfunction-associated liver disease [Unknown]
  - Metabolic surgery [Unknown]
